FAERS Safety Report 9527451 (Version 6)
Quarter: 2020Q3

REPORT INFORMATION
  Report Type: Spontaneous
  Country: FR (occurrence: FR)
  Receive Date: 20130917
  Receipt Date: 20200729
  Transmission Date: 20201103
  Serious: Yes (Life-Threatening, Hospitalization, Other)
  Sender: FDA-Public Use
  Company Number: FR-RANBAXY-2013R1-73138

PATIENT
  Age: 31 Year
  Sex: Female

DRUGS (34)
  1. FOSFOMYCINE [Suspect]
     Active Substance: FOSFOMYCIN
     Indication: ENCEPHALOMYELITIS
     Dosage: UNK
     Route: 065
  2. PANTOPRAZOLE [Suspect]
     Active Substance: PANTOPRAZOLE
     Indication: SKIN TEST
     Dosage: UNK
     Route: 065
  3. AZTREONAM. [Suspect]
     Active Substance: AZTREONAM
     Indication: URINARY TRACT INFECTION
  4. CEFOTAXIME [Suspect]
     Active Substance: CEFOTAXIME SODIUM
     Indication: PRODUCT USED FOR UNKNOWN INDICATION
     Dosage: UNK
     Route: 065
  5. LINEZOLID. [Suspect]
     Active Substance: LINEZOLID
     Indication: ENTEROCOCCAL INFECTION
     Route: 065
  6. AZTREONAM. [Suspect]
     Active Substance: AZTREONAM
     Indication: ENTEROCOCCAL INFECTION
  7. RIFAMPICIN [Suspect]
     Active Substance: RIFAMPIN
     Indication: ENTEROCOCCAL INFECTION
     Dosage: UNK
     Route: 065
  8. RIFAMPICIN [Suspect]
     Active Substance: RIFAMPIN
     Indication: URINARY TRACT INFECTION
  9. GENTAMICIN. [Suspect]
     Active Substance: GENTAMICIN
     Indication: ENTEROCOCCAL INFECTION
     Route: 065
  10. COTRIMOXAZOLE [Suspect]
     Active Substance: SULFAMETHOXAZOLE\TRIMETHOPRIM
     Indication: ENTEROCOCCAL INFECTION
     Route: 065
  11. AZTREONAM. [Suspect]
     Active Substance: AZTREONAM
     Indication: MENINGITIS
  12. GENTAMICIN. [Suspect]
     Active Substance: GENTAMICIN
     Dosage: UNK
     Route: 065
  13. DAPTOMYCIN. [Suspect]
     Active Substance: DAPTOMYCIN
     Indication: PRODUCT USED FOR UNKNOWN INDICATION
     Dosage: UNK
     Route: 065
  14. ENOXAPARIN SODIUM. [Suspect]
     Active Substance: ENOXAPARIN SODIUM
     Indication: PRODUCT USED FOR UNKNOWN INDICATION
     Dosage: UNK
     Route: 065
  15. ENOXAPARIN SODIUM. [Suspect]
     Active Substance: ENOXAPARIN SODIUM
     Route: 065
  16. PARACETAMOL [Suspect]
     Active Substance: ACETAMINOPHEN
     Indication: PRODUCT USED FOR UNKNOWN INDICATION
     Dosage: UNK
     Route: 065
  17. RIFAMPICIN [Suspect]
     Active Substance: RIFAMPIN
     Indication: MENINGITIS
  18. VANCOMYCIN [Suspect]
     Active Substance: VANCOMYCIN
     Indication: ENCEPHALOMYELITIS
     Dosage: UNK
     Route: 042
  19. CIPROFLOXACIN HYDROCHLORIDE (UNKNOWN) [Suspect]
     Active Substance: CIPROFLOXACIN HYDROCHLORIDE
     Indication: ENTEROCOCCAL INFECTION
     Dosage: UNK
     Route: 065
  20. DAPTOMYCIN. [Suspect]
     Active Substance: DAPTOMYCIN
     Route: 065
  21. FOSFOMYCINE [Suspect]
     Active Substance: FOSFOMYCIN
     Indication: URINARY TRACT INFECTION
  22. AZTREONAM. [Suspect]
     Active Substance: AZTREONAM
     Indication: ANTIBIOTIC THERAPY
     Dosage: UNK
     Route: 065
  23. RIFAMPICIN [Suspect]
     Active Substance: RIFAMPIN
     Indication: ENTEROCOCCAL INFECTION
  24. CIPROFLOXACIN HYDROCHLORIDE (UNKNOWN) [Suspect]
     Active Substance: CIPROFLOXACIN HYDROCHLORIDE
     Indication: ENTEROCOCCAL INFECTION
  25. TRIMETHOPRIM?SULFAMETHOXAZOLE (UNKNOWN) [Suspect]
     Active Substance: SULFAMETHOXAZOLE\TRIMETHOPRIM
     Indication: PSEUDOMONAS INFECTION
     Dosage: UNK
     Route: 065
  26. LINEZOLID. [Suspect]
     Active Substance: LINEZOLID
     Indication: PSEUDOMONAS INFECTION
     Dosage: UNK
     Route: 065
  27. CIPROFLOXACIN. [Suspect]
     Active Substance: CIPROFLOXACIN
     Indication: PSEUDOMONAS INFECTION
     Dosage: UNK
     Route: 065
  28. AZTREONAM. [Suspect]
     Active Substance: AZTREONAM
     Indication: SERRATIA INFECTION
  29. VANCOMYCIN [Suspect]
     Active Substance: VANCOMYCIN
     Indication: MENINGITIS
     Route: 042
  30. AZTREONAM. [Suspect]
     Active Substance: AZTREONAM
     Indication: SERRATIA INFECTION
  31. AZTREONAM. [Suspect]
     Active Substance: AZTREONAM
     Indication: ENTEROCOCCAL INFECTION
  32. COTRIMOXAZOLE [Suspect]
     Active Substance: SULFAMETHOXAZOLE\TRIMETHOPRIM
     Indication: ENTEROCOCCAL INFECTION
     Dosage: UNK
     Route: 065
  33. TRIMETHOPRIM?SULFAMETHOXAZOLE (UNKNOWN) [Suspect]
     Active Substance: SULFAMETHOXAZOLE\TRIMETHOPRIM
     Indication: PSEUDOMONAS INFECTION
  34. LINEZOLID. [Suspect]
     Active Substance: LINEZOLID
     Indication: PSEUDOMONAS INFECTION

REACTIONS (23)
  - Human herpesvirus 6 infection [Recovering/Resolving]
  - Rash [Recovering/Resolving]
  - Skin test positive [Unknown]
  - Purpura [Recovered/Resolved]
  - Dizziness [Unknown]
  - Hypotension [Unknown]
  - Condition aggravated [Recovering/Resolving]
  - Enterococcal infection [Recovering/Resolving]
  - Feeling hot [Recovering/Resolving]
  - Eosinophilia [Recovering/Resolving]
  - Drug resistance [Unknown]
  - Epstein-Barr virus infection [Unknown]
  - Erythema [Unknown]
  - Malaise [Recovering/Resolving]
  - Pyrexia [Recovered/Resolved]
  - Drug reaction with eosinophilia and systemic symptoms [Recovered/Resolved with Sequelae]
  - Human herpesvirus 7 infection [Unknown]
  - Eosinophil count increased [Recovering/Resolving]
  - Hepatocellular injury [Recovered/Resolved]
  - Oedema peripheral [Recovered/Resolved]
  - Brain abscess [Recovering/Resolving]
  - Hypotension [Recovered/Resolved]
  - Epstein-Barr virus test positive [Recovering/Resolving]
